FAERS Safety Report 6006714-4 (Version None)
Quarter: 2008Q4

REPORT INFORMATION
  Report Type: 
  Country: None (occurrence: None)
  Receive Date: 20081215
  Receipt Date: 20081201
  Transmission Date: 20090506
  Serious: Yes (Other)
  Sender: FDA-Public Use
  Company Number: 2008AL012140

PATIENT
  Sex: 0

DRUGS (5)
  1. CITALOPRAM HYDROBROMIDE [Suspect]
     Dosage: 330 MG; X1
  2. BENZODIAZEPINE DERIVATIVES [Concomitant]
  3. ........... [Concomitant]
  4. ANTIPSYCHOTICS [Concomitant]
  5. CANNABIS [Concomitant]

REACTIONS (3)
  - ANTIPSYCHOTIC DRUG LEVEL ABOVE THERAPEUTIC [None]
  - DRUG SCREEN POSITIVE [None]
  - DRUG TOXICITY [None]
